FAERS Safety Report 7656450-3 (Version None)
Quarter: 2011Q3

REPORT INFORMATION
  Report Type: 
  Country: None (occurrence: None)
  Receive Date: 20110729
  Receipt Date: 20110725
  Transmission Date: 20111222
  Serious: No
  Sender: FDA-Public Use
  Company Number: 2011-01210

PATIENT
  Age: 85 Year
  Sex: Female
  Weight: 63.5036 kg

DRUGS (4)
  1. LIPITOR [Concomitant]
  2. ZICAM COLD REMEDY RAPID MELTS [Suspect]
     Dates: start: 20110715, end: 20110717
  3. PRILOSEC [Concomitant]
  4. LOVASTATIN [Concomitant]

REACTIONS (1)
  - AGEUSIA [None]
